FAERS Safety Report 4844241-8 (Version None)
Quarter: 2005Q4

REPORT INFORMATION
  Report Type: 
  Country: None (occurrence: None)
  Receive Date: 20051202
  Receipt Date: 20051128
  Transmission Date: 20060501
  Serious: Yes (Death)
  Sender: FDA-Public Use
  Company Number: BG-AVENTIS-200520399GDDC

PATIENT
  Age: 18 Year
  Sex: Male

DRUGS (2)
  1. LANTUS [Suspect]
     Indication: DIABETES MELLITUS INSULIN-DEPENDENT
     Route: 058
     Dates: start: 20050101, end: 20050801
  2. ACTRAPID [Suspect]
     Indication: DIABETES MELLITUS INSULIN-DEPENDENT
     Route: 058
     Dates: start: 20050601, end: 20050801

REACTIONS (5)
  - HAEMOGLOBIN DECREASED [None]
  - LEUKOPENIA [None]
  - NEOPLASM MALIGNANT [None]
  - PANCYTOPENIA [None]
  - PLATELET COUNT DECREASED [None]
